FAERS Safety Report 17709312 (Version 1)
Quarter: 2020Q2

REPORT INFORMATION
  Report Type: Spontaneous
  Country: ES (occurrence: ES)
  Receive Date: 20200426
  Receipt Date: 20200426
  Transmission Date: 20200714
  Serious: Yes (Other)
  Sender: FDA-Public Use
  Company Number: ES-UNICHEM PHARMACEUTICALS (USA) INC-UCM202004-000489

PATIENT
  Age: 38 Year
  Sex: Male

DRUGS (2)
  1. LAMOTRIGINE. [Suspect]
     Active Substance: LAMOTRIGINE
     Indication: PRODUCT USED FOR UNKNOWN INDICATION
  2. LAMOTRIGINE. [Suspect]
     Active Substance: LAMOTRIGINE
     Indication: INTENTIONAL OVERDOSE
     Dosage: APPROXIMATE TOTAL DOSE OF 1,000 MG

REACTIONS (16)
  - Tachycardia [Unknown]
  - Ataxia [Unknown]
  - Metabolic acidosis [Unknown]
  - Nystagmus [Unknown]
  - Hyperreflexia [Unknown]
  - Loss of consciousness [Unknown]
  - Seizure [Unknown]
  - Headache [Unknown]
  - Leukocytosis [Unknown]
  - Metabolic encephalopathy [Unknown]
  - Serotonin syndrome [Unknown]
  - Intentional overdose [Unknown]
  - Somnolence [Unknown]
  - Blood pressure abnormal [Unknown]
  - Dysarthria [Unknown]
  - Toxicity to various agents [Unknown]
